FAERS Safety Report 6884220-2 (Version None)
Quarter: 2010Q3

REPORT INFORMATION
  Report Type: 
  Country: None (occurrence: None)
  Receive Date: 20100729
  Receipt Date: 20070602
  Transmission Date: 20110219
  Serious: Yes (Other)
  Sender: FDA-Public Use
  Company Number: US-PFIZER INC-2007045023

PATIENT
  Age: 53 Year
  Sex: Female

DRUGS (2)
  1. CELEBREX [Suspect]
     Indication: PAIN
     Dates: start: 20070531
  2. CYMBALTA [Concomitant]
     Dates: start: 20070101

REACTIONS (2)
  - INFLUENZA LIKE ILLNESS [None]
  - SWELLING FACE [None]
